FAERS Safety Report 16387506 (Version 1)
Quarter: 2019Q2

REPORT INFORMATION
  Report Type: Spontaneous
  Country: US (occurrence: US)
  Receive Date: 20190426
  Receipt Date: 20190426
  Transmission Date: 20190711
  Serious: Yes (Disabling)
  Sender: FDA-Public Use
  Company Number: None

PATIENT
  Age: 76 Year
  Sex: Female
  Weight: 52.16 kg

DRUGS (1)
  1. BOTULINUM TOXIN TYPE A SOLR [Suspect]
     Active Substance: BOTULINUM TOXIN TYPE A
     Indication: FACIAL PARALYSIS
     Dates: start: 20170911

REACTIONS (3)
  - Scapular dyskinesis [None]
  - Skin discolouration [None]
  - Facial spasm [None]

NARRATIVE: CASE EVENT DATE: 201801
